FAERS Safety Report 20908976 (Version 1)
Quarter: 2022Q2

REPORT INFORMATION
  Report Type: Spontaneous
  Country: JP (occurrence: JP)
  Receive Date: 20220603
  Receipt Date: 20220603
  Transmission Date: 20220721
  Serious: Yes (Death, Hospitalization, Other)
  Sender: FDA-Public Use
  Company Number: JP-SAKK-2022SA200111AA

PATIENT
  Age: 82 Year
  Sex: Male

DRUGS (1)
  1. TAXOTERE [Suspect]
     Active Substance: DOCETAXEL
     Indication: Prostate cancer
     Route: 041

REACTIONS (3)
  - Pulmonary toxicity [Fatal]
  - Dyspnoea [Fatal]
  - Pneumonia [Fatal]
